FAERS Safety Report 9163232 (Version 1)
Quarter: 2013Q1

REPORT INFORMATION
  Report Type: Spontaneous
  Country: US (occurrence: None)
  Receive Date: 20130226
  Receipt Date: 20130226
  Transmission Date: 20140127
  Serious: Yes (Life-Threatening, Hospitalization)
  Sender: FDA-Public Use
  Company Number: 1609029

PATIENT
  Age: 47 Year
  Sex: Male

DRUGS (5)
  1. AZITHROMYCIN [Suspect]
  2. METHADONE [Concomitant]
  3. LISINOPRIL/HYDROCHLOROTHIAZIDE 20/25 (WATSON LABORATORIES) [Concomitant]
  4. BENZONATATE [Concomitant]
  5. PARACETAMOL W/DEXTROMETHORPHAN/DOXYLAMINE [Concomitant]

REACTIONS (5)
  - Cardiac arrest [None]
  - Electrocardiogram QT prolonged [None]
  - Cardiovascular disorder [None]
  - Drug abuse [None]
  - Tachycardia [None]
